FAERS Safety Report 15213646 (Version 4)
Quarter: 2022Q2

REPORT INFORMATION
  Report Type: Report from Study
  Country: US (occurrence: None)
  Receive Date: 20180730
  Receipt Date: 20220513
  Transmission Date: 20220721
  Serious: Yes (Other)
  Sender: FDA-Public Use
  Company Number: US-ROCHE-2158912

PATIENT
  Age: 63 Year
  Sex: Female
  Weight: 97.5 kg

DRUGS (6)
  1. ATEZOLIZUMAB [Suspect]
     Active Substance: ATEZOLIZUMAB
     Indication: Adenocarcinoma of colon
     Dosage: FOR CYCLES 1-25 (CYCLE = 14 DAYS) ON DAY 1?MOST RECENT DOSE PRIOR TO ONSET OF DIARREHA ON 23/APR/201
     Route: 041
     Dates: start: 20180423
  2. FLUOROURACIL [Suspect]
     Active Substance: FLUOROURACIL
     Indication: Adenocarcinoma of colon
     Dosage: FOR CYCLES 1-12 (CYCLE = 14 DAYS) ON DAY 1?MOST RECENT DOSE OF 5-FLUOROURACIL PRIOR TO THE ONSET OF
     Route: 040
     Dates: start: 20180423
  3. FLUOROURACIL [Suspect]
     Active Substance: FLUOROURACIL
     Dosage: FOR CYCLES 1-12 (CYCLE = 14 DAYS)
     Route: 041
     Dates: start: 20180423
  4. OXALIPLATIN [Suspect]
     Active Substance: OXALIPLATIN
     Indication: Adenocarcinoma of colon
     Dosage: FOR CYCLES 1-12 (CYCLE = 14 DAYS) OVER 2 HOURS ON DAY 1?MOST RECENT DOSE OF ATEZOLIZUMAB PRIOR TO TH
     Route: 042
     Dates: start: 20180423
  5. LEUCOVORIN CALCIUM [Suspect]
     Active Substance: LEUCOVORIN CALCIUM
     Indication: Adenocarcinoma of colon
     Dosage: FOR CYCLES 1-12 (CYCLE = 14 DAYS) OVER 2 HOURS ON DAY 1?MOST RECENT DOSE OF ATEZOLIZUMAB PRIOR TO TH
     Route: 042
     Dates: start: 20180423
  6. VISTOGARD [Suspect]
     Active Substance: URIDINE TRIACETATE
     Indication: Product used for unknown indication
     Route: 065
     Dates: start: 20180427

REACTIONS (3)
  - Neutrophil count decreased [Recovered/Resolved with Sequelae]
  - Hypokalaemia [Recovered/Resolved with Sequelae]
  - Diarrhoea [Recovered/Resolved]

NARRATIVE: CASE EVENT DATE: 20180427
